FAERS Safety Report 5089330-0 (Version None)
Quarter: 2006Q3

REPORT INFORMATION
  Report Type: 
  Country: None (occurrence: None)
  Receive Date: 20060822
  Receipt Date: 20060808
  Transmission Date: 20061208
  Serious: Yes (Death, Other)
  Sender: FDA-Public Use
  Company Number: CAN-2006-0000346

PATIENT
  Age: 43 Year
  Sex: Female

DRUGS (2)
  1. HYDROMORPHONE HCL [Suspect]
     Indication: DRUG USE FOR UNKNOWN INDICATION
  2. ETHANOL (ETHANOL) [Concomitant]

REACTIONS (4)
  - ACCIDENTAL OVERDOSE [None]
  - ASPHYXIA [None]
  - PETECHIAE [None]
  - PULMONARY CONGESTION [None]
